FAERS Safety Report 16702222 (Version 3)
Quarter: 2019Q4

REPORT INFORMATION
  Report Type: Spontaneous
  Country: US (occurrence: US)
  Receive Date: 20190814
  Receipt Date: 20191104
  Transmission Date: 20200122
  Serious: No
  Sender: FDA-Public Use
  Company Number: US-PFIZER INC-2018228572

PATIENT
  Age: 70 Year
  Sex: Female
  Weight: 104.31 kg

DRUGS (21)
  1. SYNTHROID [Concomitant]
     Active Substance: LEVOTHYROXINE SODIUM
     Dosage: 150 UG, DAILY (TAKE 1 TABLET (150 MCG TOTAL) BY MOUTH DAILY)
     Route: 048
  2. COLACE [Concomitant]
     Active Substance: DOCUSATE SODIUM
     Dosage: 200 MG, 2X/DAY (2 MORNING + 2 NIGHT)
  3. ATIVAN [Concomitant]
     Active Substance: LORAZEPAM
     Indication: ANXIETY
     Dosage: 0.5 MG, AS NEEDED (TAKE ONE TABLET BY MOUTH EVERY 8 HOURS AS, 1 DAILY)
     Route: 048
  4. EFFEXOR [Concomitant]
     Active Substance: VENLAFAXINE HYDROCHLORIDE
     Dosage: 75 MG, UNK
  5. DURAGESIC [Concomitant]
     Active Substance: FENTANYL
     Dosage: UNK(12 MCG/HR/ PLACE ONE PATCH ONTO THE SKIN EVERY 3 DAYS USE WITH 25MCG=37MCG))
  6. PRILOSEC [Concomitant]
     Active Substance: OMEPRAZOLE MAGNESIUM
     Dosage: 20 MG, 2X/DAY (TAKE ONE CAPSULE BY MOUTH TWICE DAILY)
     Route: 048
  7. OYST-CAL [Concomitant]
     Dosage: UNK
     Route: 048
  8. CARAFATE [Concomitant]
     Active Substance: SUCRALFATE
     Dosage: 1 G, AS NEEDED
  9. XALKORI [Suspect]
     Active Substance: CRIZOTINIB
     Indication: LUNG NEOPLASM MALIGNANT
     Dosage: 250 MG, 2X/DAY
     Route: 048
  10. VITAMIN B COMPLEX NOS [Concomitant]
     Active Substance: CYANOCOBALAMIN\PYRIDOXINE HYDROCHLORIDE\RIBOFLAVIN\SODIUM PANTOTHENATE\THIAMINE HYDROCHLORIDE\VITAMIN B COMPLEX
     Dosage: UNK, 1X/DAY (1 DAILY)
  11. COENZYME Q10 [Concomitant]
     Active Substance: UBIDECARENONE
     Dosage: 100 MG, 2X/DAY
  12. FLEXERIL [Concomitant]
     Active Substance: CYCLOBENZAPRINE HYDROCHLORIDE
     Dosage: 10 MG, 2X/DAY
  13. CHRONULAC [Concomitant]
     Active Substance: LACTULOSE
     Dosage: UNK, AS NEEDED (TAKE 15 MLS (10 G TOTAL) BY MOUTHH DAILY, WHEN NEEDED)
     Route: 048
  14. MOVE FREE [CHONDROITIN SULFATE;GLUCOSAMINE] [Concomitant]
     Dosage: UNK, 2X/DAY(500-400 MG TABLET/ 2X DAY)
  15. ZESTRIL [Concomitant]
     Active Substance: LISINOPRIL
     Dosage: 40 MG, 1X/DAY
  16. CATAPRES [Concomitant]
     Active Substance: CLONIDINE HYDROCHLORIDE
     Dosage: 0.4 MG, 2X/DAY (2 TAB MORNING + 2 TABS NIGHT)
  17. GINKGO BILOBA [Concomitant]
     Active Substance: GINKGO
     Dosage: 40 MG, DAILY (1 MORNING)
  18. PRINIVIL [Concomitant]
     Active Substance: LISINOPRIL
     Dosage: 40 MG, 1X/DAY
  19. DURAGESIC [Concomitant]
     Active Substance: FENTANYL
     Dosage: UNK(25 MCG/HR/APPLY ONE PATCH ONTO THE SKIN EVERY 3 DAYS USE  WITH 12MCG=37MCG)
  20. MAGNESIUM OXIDE. [Concomitant]
     Active Substance: MAGNESIUM OXIDE
     Dosage: 500 MG, 1X/DAY (1 EA. DAY)
  21. OXYCODONE [Concomitant]
     Active Substance: OXYCODONE
     Dosage: 20 MG, UNK (2 TO 3 TIMES DAILY)

REACTIONS (4)
  - Malaise [Recovered/Resolved]
  - Pain [Recovered/Resolved]
  - Feeling abnormal [Recovered/Resolved]
  - Intentional product misuse [Recovered/Resolved]
